FAERS Safety Report 10691258 (Version 2)
Quarter: 2015Q2

REPORT INFORMATION
  Report Type: Spontaneous
  Country: PT (occurrence: PT)
  Receive Date: 20150105
  Receipt Date: 20150603
  Transmission Date: 20150821
  Serious: Yes (Other)
  Sender: FDA-Public Use
  Company Number: PT-MYLANLABS-2014M1015856

PATIENT
  Age: 42 Year
  Sex: Female

DRUGS (1)
  1. CLINDAMYCIN [Suspect]
     Active Substance: CLINDAMYCIN\CLINDAMYCIN PHOSPHATE
     Indication: DIABETIC FOOT
     Route: 065

REACTIONS (2)
  - Toxicity to various agents [Recovering/Resolving]
  - Oesophagitis [Recovering/Resolving]
